FAERS Safety Report 5566392-5 (Version None)
Quarter: 2007Q4

REPORT INFORMATION
  Report Type: 
  Country: None (occurrence: None)
  Receive Date: 20071219
  Receipt Date: 20071206
  Transmission Date: 20080405
  Serious: Yes (Hospitalization)
  Sender: FDA-Public Use
  Company Number: DE-BAYER-200717839GPV

PATIENT
  Age: 33 Year
  Sex: Female
  Weight: 94 kg

DRUGS (5)
  1. SEQUENTIAL MOXIFLOXACIN 400 MG QD VS. PIPERACILLIN/TAZOBACTAM [Suspect]
     Indication: SKIN INFECTION
     Route: 042
     Dates: start: 20071120, end: 20071121
  2. PANTOPRAZOLE SODIUM [Concomitant]
     Indication: DRUG USE FOR UNKNOWN INDICATION
     Route: 048
     Dates: start: 20071119, end: 20071122
  3. ACETAMINOPHEN [Concomitant]
     Indication: DRUG USE FOR UNKNOWN INDICATION
     Route: 048
     Dates: start: 20071120, end: 20071120
  4. ACETAMINOPHEN [Concomitant]
     Route: 048
     Dates: start: 20071121, end: 20071121
  5. RINGER'S [Concomitant]
     Indication: DRUG USE FOR UNKNOWN INDICATION
     Route: 042
     Dates: start: 20071119, end: 20071119

REACTIONS (1)
  - ABSCESS [None]
